FAERS Safety Report 8392868-1 (Version None)
Quarter: 2012Q2

REPORT INFORMATION
  Report Type: 
  Country: None (occurrence: None)
  Receive Date: 20120529
  Receipt Date: 20110711
  Transmission Date: 20120825
  Serious: No
  Sender: FDA-Public Use
  Company Number: US-MYLANLABS-2011S1010798

PATIENT
  Age: 70 Year
  Sex: Male

DRUGS (7)
  1. ZOLPIDEM TARTRATE [Suspect]
     Indication: INSOMNIA
     Route: 048
     Dates: start: 20110323, end: 20110519
  2. VITAMIN C [Concomitant]
  3. CALCIUM [Concomitant]
  4. VITAMIN B-12 [Concomitant]
  5. ZOLPIDEM TARTRATE [Suspect]
     Route: 048
     Dates: start: 20110323, end: 20110519
  6. LIPITOR [Concomitant]
     Indication: BLOOD CHOLESTEROL INCREASED
  7. BYSTOLIC [Concomitant]
     Indication: BLOOD PRESSURE INCREASED

REACTIONS (3)
  - SOMNOLENCE [None]
  - MIDDLE INSOMNIA [None]
  - HANGOVER [None]
